FAERS Safety Report 8461746-1 (Version None)
Quarter: 2012Q2

REPORT INFORMATION
  Report Type: 
  Country: None (occurrence: None)
  Receive Date: 20120625
  Receipt Date: 20120613
  Transmission Date: 20120825
  Serious: Yes (Hospitalization)
  Sender: FDA-Public Use
  Company Number: DE-JNJFOC-20120607905

PATIENT
  Age: 48 Year
  Sex: Female

DRUGS (9)
  1. RISPERDAL [Suspect]
     Indication: PRODUCT USED FOR UNKNOWN INDICATION
     Route: 048
     Dates: start: 20111103, end: 20111211
  2. RISPERDAL [Suspect]
     Route: 048
     Dates: start: 20120116, end: 20120125
  3. RISPERDAL [Suspect]
     Route: 048
     Dates: start: 20111212, end: 20111218
  4. RISPERDAL CONSTA [Suspect]
     Route: 030
     Dates: start: 20111228, end: 20111228
  5. RISPERDAL [Suspect]
     Route: 048
     Dates: start: 20111219, end: 20111228
  6. RISPERDAL [Suspect]
     Route: 048
     Dates: start: 20120103, end: 20120115
  7. RISPERDAL CONSTA [Suspect]
     Route: 030
     Dates: start: 20111130, end: 20111130
  8. RISPERDAL CONSTA [Suspect]
     Route: 030
     Dates: start: 20111214, end: 20111214
  9. RISPERDAL CONSTA [Suspect]
     Indication: PRODUCT USED FOR UNKNOWN INDICATION
     Route: 030
     Dates: start: 20111116, end: 20111116

REACTIONS (2)
  - SUICIDAL IDEATION [None]
  - DEPRESSION [None]
